FAERS Safety Report 19086345 (Version 1)
Quarter: 2021Q2

REPORT INFORMATION
  Report Type: Spontaneous
  Country: FR (occurrence: FR)
  Receive Date: 20210402
  Receipt Date: 20210402
  Transmission Date: 20210717
  Serious: Yes (Hospitalization)
  Sender: FDA-Public Use
  Company Number: FR-TEVA-2021-FR-1896070

PATIENT
  Sex: Male

DRUGS (3)
  1. METHYLPHENIDATE. [Suspect]
     Active Substance: METHYLPHENIDATE
     Indication: DRUG ABUSE
     Dosage: UNSPECIFIED
     Route: 065
  2. SUBUTEX [Suspect]
     Active Substance: BUPRENORPHINE HYDROCHLORIDE
     Indication: DRUG ABUSE
     Dosage: CP, 16MG
     Route: 055
     Dates: start: 202002
  3. CANNABIS [Suspect]
     Active Substance: CANNABIS SATIVA SUBSP. INDICA TOP
     Indication: DRUG ABUSE
     Dosage: 3 TO 50 G / D (RESIN)
     Route: 065
     Dates: start: 1989

REACTIONS (4)
  - Drug abuse [Not Recovered/Not Resolved]
  - Sinus bradycardia [Recovering/Resolving]
  - Abdominal pain upper [Not Recovered/Not Resolved]
  - Cough [Not Recovered/Not Resolved]

NARRATIVE: CASE EVENT DATE: 1984
